FAERS Safety Report 6371745-1 (Version None)
Quarter: 2009Q3

REPORT INFORMATION
  Report Type: 
  Country: None (occurrence: None)
  Receive Date: 20090918
  Receipt Date: 20090918
  Transmission Date: 20100115
  Serious: No
  Sender: FDA-Public Use
  Company Number: None

PATIENT
  Sex: Male
  Weight: 134.2647 kg

DRUGS (1)
  1. TENORMIN [Suspect]
     Indication: HYPERTENSION

REACTIONS (4)
  - DIARRHOEA [None]
  - DIZZINESS [None]
  - HEADACHE [None]
  - PRODUCT SUBSTITUTION ISSUE [None]
